FAERS Safety Report 7350676-4 (Version None)
Quarter: 2011Q1

REPORT INFORMATION
  Report Type: 
  Country: None (occurrence: None)
  Receive Date: 20110314
  Receipt Date: 20110304
  Transmission Date: 20110831
  Serious: Yes (Hospitalization, Other)
  Sender: FDA-Public Use
  Company Number: DE-GENZYME-RENA-1001108

PATIENT
  Sex: Male
  Weight: 58.5 kg

DRUGS (20)
  1. RENVELA [Suspect]
     Indication: HYPERPHOSPHATAEMIA
     Dosage: 3.2 G, QD
     Route: 048
     Dates: start: 20091214
  2. ALPROSTADIL [Concomitant]
     Indication: PERIPHERAL ARTERIAL OCCLUSIVE DISEASE
     Dosage: 20 MCG, UNK
     Dates: start: 20101117
  3. ARANESP [Concomitant]
     Indication: ANAEMIA
     Dosage: 60 MCG, 2X/W
     Dates: start: 20100503
  4. NEXIUM [Concomitant]
     Indication: PROPHYLAXIS
     Dosage: 40 MG, QD
     Dates: start: 20060904
  5. OPIPRAMOL [Concomitant]
     Indication: PRODUCT USED FOR UNKNOWN INDICATION
     Dosage: 50 MG, QD
     Route: 065
     Dates: start: 20100830
  6. CALCIUM ACETATE [Concomitant]
     Indication: BLOOD PHOSPHORUS ABNORMAL
     Dosage: 4500 MG, QD
  7. GINGIUM [Concomitant]
     Indication: DEMENTIA
     Dosage: 120 UNK, QD
     Route: 065
  8. RENVELA [Suspect]
     Dosage: 1.6 G, QD
     Route: 048
     Dates: end: 20100714
  9. PARACODIN BITARTRATE TAB [Concomitant]
     Indication: PRODUCT USED FOR UNKNOWN INDICATION
     Dosage: UNK
     Dates: start: 20100714
  10. CALCIUM ACETATE [Concomitant]
     Dosage: 2000 MG, QD
  11. OXAZEPAM [Concomitant]
     Indication: SLEEP DISORDER
     Dosage: UNK
     Route: 065
     Dates: start: 20080926
  12. FREKAVIT [Concomitant]
     Indication: MALNUTRITION
     Dosage: UNK
     Route: 065
     Dates: start: 20100707
  13. EMLA [Concomitant]
     Indication: PAIN MANAGEMENT
     Dosage: UNK
     Route: 065
     Dates: start: 20060308
  14. ACETYLCYSTEINE [Concomitant]
     Indication: CHRONIC OBSTRUCTIVE PULMONARY DISEASE
     Dosage: 600 MG, QD
     Route: 065
     Dates: start: 20101117
  15. CALCIUM ACETATE [Concomitant]
     Dosage: 8000 MG, QD
  16. ZYVOX [Concomitant]
     Indication: PNEUMONIA
     Dosage: 600 MG, BID
     Route: 065
     Dates: start: 20101117
  17. DREISAVIT N [Concomitant]
     Indication: VITAMIN SUPPLEMENTATION
     Dosage: UNK
     Route: 065
     Dates: start: 20060904
  18. PLAVIX [Concomitant]
     Indication: ANTICOAGULANT THERAPY
     Dosage: UNK
     Route: 065
     Dates: start: 20061208
  19. PROTHYRID [Concomitant]
     Indication: HYPOTHYROIDISM
     Dosage: UNK
     Route: 065
     Dates: start: 20040719
  20. FERRLECIT [Concomitant]
     Indication: ANAEMIA
     Dosage: 40 MG, 1X/W
     Route: 065
     Dates: start: 20100719

REACTIONS (11)
  - DYSPNOEA [None]
  - LUNG INFILTRATION [None]
  - INFECTION [None]
  - MUSCULAR WEAKNESS [None]
  - PLEURAL EFFUSION [None]
  - RESPIRATORY FAILURE [None]
  - COUGH [None]
  - LUNG INFECTION [None]
  - PRODUCTIVE COUGH [None]
  - DYSPNOEA EXERTIONAL [None]
  - PERIPHERAL ARTERIAL OCCLUSIVE DISEASE [None]
